FAERS Safety Report 20166999 (Version 1)
Quarter: 2021Q4

REPORT INFORMATION
  Report Type: Spontaneous
  Country: HR (occurrence: HR)
  Receive Date: 20211209
  Receipt Date: 20211209
  Transmission Date: 20220303
  Serious: Yes (Other)
  Sender: FDA-Public Use
  Company Number: HR-BoehringerIngelheim-2021-BI-141547

PATIENT
  Age: 65 Year
  Sex: Male

DRUGS (5)
  1. GILOTRIF [Suspect]
     Active Substance: AFATINIB
     Indication: Adenocarcinoma
     Dates: start: 201810, end: 201912
  2. GILOTRIF [Suspect]
     Active Substance: AFATINIB
     Dates: start: 201912
  3. PANTOPRAZOLE SODIUM [Concomitant]
     Active Substance: PANTOPRAZOLE SODIUM
     Indication: Product used for unknown indication
     Dates: start: 201912
  4. BUTYLSCOPOLAMINE BROMIDE [Concomitant]
     Active Substance: BUTYLSCOPOLAMINE BROMIDE
     Indication: Product used for unknown indication
     Dates: start: 201912
  5. OSIMERTINIB [Concomitant]
     Active Substance: OSIMERTINIB
     Indication: Product used for unknown indication
     Dates: start: 202105

REACTIONS (3)
  - Haematuria [Unknown]
  - Gamma radiation therapy to prostate [Unknown]
  - Bronchopulmonary disease [Unknown]

NARRATIVE: CASE EVENT DATE: 20191201
